FAERS Safety Report 24363133 (Version 1)
Quarter: 2024Q3

REPORT INFORMATION
  Report Type: Report from Study
  Country: CA (occurrence: CA)
  Receive Date: 20240925
  Receipt Date: 20240925
  Transmission Date: 20241016
  Serious: Yes (Other)
  Sender: JOHNSON AND JOHNSON
  Company Number: CA-JNJFOC-20240548219

PATIENT
  Age: 77 Year
  Sex: Male

DRUGS (4)
  1. REMICADE [Suspect]
     Active Substance: INFLIXIMAB
     Indication: Crohn^s disease
     Dosage: EXPIRY: OCT/2026
     Route: 041
     Dates: start: 20140317
  2. REMICADE [Suspect]
     Active Substance: INFLIXIMAB
     Route: 041
  3. ALTACE [Concomitant]
     Active Substance: RAMIPRIL
     Indication: Product used for unknown indication
  4. PREVACID [Concomitant]
     Active Substance: LANSOPRAZOLE
     Indication: Product used for unknown indication

REACTIONS (7)
  - Cataract [Recovered/Resolved]
  - Intestinal obstruction [Recovered/Resolved]
  - Road traffic accident [Unknown]
  - Cervical vertebral fracture [Not Recovered/Not Resolved]
  - Device breakage [Unknown]
  - Skin cancer [Recovered/Resolved]
  - Arthralgia [Unknown]

NARRATIVE: CASE EVENT DATE: 20240101
